FAERS Safety Report 14134200 (Version 1)
Quarter: 2017Q4

REPORT INFORMATION
  Report Type: Spontaneous
  Country: US (occurrence: US)
  Receive Date: 20171026
  Receipt Date: 20171026
  Transmission Date: 20180321
  Serious: No
  Sender: FDA-Public Use
  Company Number: US-009507513-1710USA013677

PATIENT

DRUGS (1)
  1. PRINIVIL [Suspect]
     Active Substance: LISINOPRIL
     Dosage: 12.5 MG DAILY
     Route: 048

REACTIONS (3)
  - Accidental overdose [Unknown]
  - Hypotension [Unknown]
  - Drug administration error [Unknown]
